FAERS Safety Report 16758756 (Version 1)
Quarter: 2019Q3

REPORT INFORMATION
  Report Type: Spontaneous
  Country: DE (occurrence: DE)
  Receive Date: 20190830
  Receipt Date: 20190830
  Transmission Date: 20191005
  Serious: Yes (Death, Congenital Anomaly)
  Sender: FDA-Public Use
  Company Number: DE-ALKEM LABORATORIES LIMITED-DE-ALKEM-2017-02268

PATIENT
  Sex: Female
  Weight: .02 kg

DRUGS (4)
  1. QUETIAPINE FUMARATE. [Suspect]
     Active Substance: QUETIAPINE FUMARATE
     Dosage: UNKNOWN
     Route: 064
  2. PHENPROCOUMON [Suspect]
     Active Substance: PHENPROCOUMON
     Dosage: UNKNOWN
     Route: 064
  3. CLEXANE [Suspect]
     Active Substance: ENOXAPARIN SODIUM
     Dosage: UNKNOWN
     Route: 064
  4. FOLSAURE [Suspect]
     Active Substance: FOLIC ACID
     Dosage: UNKNOWN
     Route: 064

REACTIONS (6)
  - Hypoplastic left heart syndrome [Fatal]
  - Talipes [Fatal]
  - Dysmorphism [Fatal]
  - Foetal exposure during pregnancy [Unknown]
  - Cleft lip and palate [Fatal]
  - Hygroma colli [Fatal]
